FAERS Safety Report 7361372-1 (Version None)
Quarter: 2011Q1

REPORT INFORMATION
  Report Type: 
  Country: None (occurrence: None)
  Receive Date: 20110309
  Receipt Date: 20110224
  Transmission Date: 20110831
  Serious: Yes (Other)
  Sender: FDA-Public Use
  Company Number: JPI-P-013179

PATIENT
  Age: 51 Year
  Sex: Female

DRUGS (6)
  1. DIAZEPAM [Concomitant]
  2. XYREM [Suspect]
     Indication: INSOMNIA
     Dosage: 4.5 GM (2.25 GM, 2 IN 1 D), ORAL; ORAL; 9 GM (4.5 GM, 2 IN 1 D), ORAL
     Route: 048
     Dates: start: 20050309
  3. XYREM [Suspect]
     Indication: INSOMNIA
     Dosage: 4.5 GM (2.25 GM, 2 IN 1 D), ORAL; ORAL; 9 GM (4.5 GM, 2 IN 1 D), ORAL
     Route: 048
     Dates: start: 20051130
  4. CARISOPRODOL [Concomitant]
  5. ZOLPIDEM TARTRATE [Concomitant]
  6. PREGABALIN [Concomitant]

REACTIONS (19)
  - FALL [None]
  - RESPIRATORY DEPRESSION [None]
  - MEMORY IMPAIRMENT [None]
  - DRUG INTERACTION [None]
  - INCORRECT DOSE ADMINISTERED [None]
  - THERMAL BURN [None]
  - FEELING ABNORMAL [None]
  - MIDDLE INSOMNIA [None]
  - CONVULSION [None]
  - HYPOAESTHESIA [None]
  - SWELLING [None]
  - ANKLE FRACTURE [None]
  - APHASIA [None]
  - INFECTIOUS MONONUCLEOSIS [None]
  - CONTUSION [None]
  - ABASIA [None]
  - ENURESIS [None]
  - COORDINATION ABNORMAL [None]
  - POOR QUALITY SLEEP [None]
